FAERS Safety Report 25103173 (Version 1)
Quarter: 2025Q1

REPORT INFORMATION
  Report Type: Spontaneous
  Country: US (occurrence: US)
  Receive Date: 20250321
  Receipt Date: 20250321
  Transmission Date: 20250408
  Serious: Yes (Other)
  Sender: NOVO NORDISK
  Company Number: US-NOVOPROD-1391527

PATIENT
  Age: 20 Year
  Sex: Female
  Weight: 79.365 kg

DRUGS (20)
  1. WEGOVY [Suspect]
     Active Substance: SEMAGLUTIDE
     Indication: Weight increased
     Dates: start: 2024, end: 202412
  2. LUMRYZ [Suspect]
     Active Substance: SODIUM OXYBATE
     Dosage: 7.5 G, QD
     Route: 048
     Dates: start: 202501, end: 20250210
  3. LUMRYZ [Suspect]
     Active Substance: SODIUM OXYBATE
     Route: 048
     Dates: start: 20250211
  4. LUMRYZ [Suspect]
     Active Substance: SODIUM OXYBATE
     Dates: start: 202412
  5. LUMRYZ [Suspect]
     Active Substance: SODIUM OXYBATE
     Indication: Cataplexy
     Dosage: 6 G, QD
     Route: 048
     Dates: start: 20241205
  6. LUMRYZ [Suspect]
     Active Substance: SODIUM OXYBATE
     Indication: Narcolepsy
     Dates: start: 20241114, end: 20241204
  7. QUETIAPINE [Suspect]
     Active Substance: QUETIAPINE
     Indication: Product used for unknown indication
     Dates: end: 202411
  8. QUETIAPINE [Suspect]
     Active Substance: QUETIAPINE
     Dates: start: 202412
  9. QUETIAPINE [Suspect]
     Active Substance: QUETIAPINE
     Dates: end: 202412
  10. LITHIUM [Concomitant]
     Active Substance: LITHIUM
     Indication: Product used for unknown indication
     Dosage: 450 MG, QD
  11. SEROQUEL [Concomitant]
     Active Substance: QUETIAPINE FUMARATE
     Indication: Product used for unknown indication
  12. KLONOPIN [Concomitant]
     Active Substance: CLONAZEPAM
     Indication: Product used for unknown indication
  13. ZOFRAN [Concomitant]
     Active Substance: ONDANSETRON HYDROCHLORIDE
     Indication: Nausea
  14. PROPRANOLOL [Concomitant]
     Active Substance: PROPRANOLOL HYDROCHLORIDE
     Indication: Product used for unknown indication
  15. METHYLPHENIDATE [Concomitant]
     Active Substance: METHYLPHENIDATE
     Indication: Product used for unknown indication
  16. MODAFINIL [Concomitant]
     Active Substance: MODAFINIL
     Indication: Product used for unknown indication
     Dosage: 250 MG, QD
  17. WAKIX [Concomitant]
     Active Substance: PITOLISANT HYDROCHLORIDE
     Indication: Product used for unknown indication
     Dosage: 35.6 MG, QD
  18. VALTREX [Concomitant]
     Active Substance: VALACYCLOVIR HYDROCHLORIDE
     Indication: Product used for unknown indication
     Dosage: 500 MG, QD
     Route: 048
  19. VITAMINS [Concomitant]
     Active Substance: VITAMINS
     Indication: Product used for unknown indication
     Route: 048
  20. LILETTA [Concomitant]
     Active Substance: LEVONORGESTREL
     Indication: Product used for unknown indication

REACTIONS (17)
  - Loss of consciousness [Unknown]
  - Blood potassium decreased [Not Recovered/Not Resolved]
  - Blood calcium increased [Not Recovered/Not Resolved]
  - Vertigo [Unknown]
  - Feeling abnormal [Unknown]
  - Insomnia [Unknown]
  - Hypophagia [Not Recovered/Not Resolved]
  - Sleep deficit [Recovering/Resolving]
  - Initial insomnia [Not Recovered/Not Resolved]
  - Poor quality sleep [Not Recovered/Not Resolved]
  - Muscle spasms [Not Recovered/Not Resolved]
  - Somnolence [Unknown]
  - Weight decreased [Unknown]
  - Fatigue [Unknown]
  - Dizziness [Unknown]
  - Nausea [Recovering/Resolving]
  - Vomiting [Recovered/Resolved]

NARRATIVE: CASE EVENT DATE: 20241101
